FAERS Safety Report 9062343 (Version 1)
Quarter: 2013Q1

REPORT INFORMATION
  Report Type: Spontaneous
  Country: US (occurrence: US)
  Receive Date: 20130213
  Receipt Date: 20130213
  Transmission Date: 20140127
  Serious: Yes (Hospitalization)
  Sender: FDA-Public Use
  Company Number: US-GLAXOSMITHKLINE-A1010952A

PATIENT
  Age: 81 Year
  Sex: Female
  Weight: 66.8 kg

DRUGS (6)
  1. ADVAIR [Suspect]
     Indication: ASTHMA
     Dosage: 1PUFF TWICE PER DAY
     Route: 055
  2. SPIRIVA [Concomitant]
  3. FUROSEMIDE [Concomitant]
  4. SOTALOL [Concomitant]
  5. CALCIUM [Concomitant]
  6. VITAMIN D3 [Concomitant]

REACTIONS (11)
  - Atrial fibrillation [Unknown]
  - Aortic valve replacement [Unknown]
  - Loss of consciousness [Unknown]
  - Hip fracture [Unknown]
  - Cardiac pacemaker insertion [Unknown]
  - Pneumonia [Unknown]
  - Cardiac murmur [Unknown]
  - Pruritus [Recovered/Resolved]
  - Weight decreased [Recovered/Resolved]
  - Bone density decreased [Not Recovered/Not Resolved]
  - Osteoporosis [Not Recovered/Not Resolved]
